FAERS Safety Report 4430691-0 (Version None)
Quarter: 2004Q3

REPORT INFORMATION
  Report Type: 
  Country: None (occurrence: None)
  Receive Date: 20040819
  Receipt Date: 20040819
  Transmission Date: 20050211
  Serious: Yes (Other)
  Sender: FDA-Public Use
  Company Number: None

PATIENT
  Age: 46 Year
  Sex: Male
  Weight: 73 kg

DRUGS (1)
  1. RESPERIDONE 1 MG OD TABLET KALI LABORATORIESM INC [Suspect]
     Dosage: ONE (1) TABLET ORALLY
     Route: 048
     Dates: start: 20040811

REACTIONS (2)
  - ATRIAL FIBRILLATION [None]
  - SYNCOPE [None]
